FAERS Safety Report 20010104 (Version 2)
Quarter: 2021Q4

REPORT INFORMATION
  Report Type: Spontaneous
  Country: US (occurrence: US)
  Receive Date: 20211029
  Receipt Date: 20211122
  Transmission Date: 20220303
  Serious: No
  Sender: FDA-Public Use
  Company Number: US-009507513-2110USA005033

PATIENT
  Age: 57 Year
  Sex: Female

DRUGS (8)
  1. CUBICIN [Suspect]
     Active Substance: DAPTOMYCIN
     Indication: Bacterial infection
     Dosage: UNK
  2. CUBICIN [Suspect]
     Active Substance: DAPTOMYCIN
     Indication: Candida infection
  3. CUBICIN [Suspect]
     Active Substance: DAPTOMYCIN
     Indication: Enterococcal infection
  4. CUBICIN [Suspect]
     Active Substance: DAPTOMYCIN
     Indication: Lactobacillus infection
  5. AMPHOTERICIN B [Concomitant]
     Active Substance: AMPHOTERICIN B
     Indication: Bacterial infection
  6. AZTREONAM [Concomitant]
     Active Substance: AZTREONAM
     Indication: Bacterial infection
  7. LINEZOLID [Concomitant]
     Active Substance: LINEZOLID
     Indication: Bacterial infection
  8. METRONIDAZOLE [Concomitant]
     Active Substance: METRONIDAZOLE
     Indication: Bacterial infection

REACTIONS (1)
  - Product use in unapproved indication [Unknown]
